FAERS Safety Report 23737524 (Version 1)
Quarter: 2024Q2

REPORT INFORMATION
  Report Type: Spontaneous
  Country: US (occurrence: US)
  Receive Date: 20240412
  Receipt Date: 20240412
  Transmission Date: 20240716
  Serious: No
  Sender: FDA-Public Use
  Company Number: US-BEIGENE-BGN-2024-005330

PATIENT

DRUGS (2)
  1. BRUKINSA [Suspect]
     Active Substance: ZANUBRUTINIB
     Indication: Mantle cell lymphoma
     Dosage: UNK
  2. VENETOCLAX [Suspect]
     Active Substance: VENETOCLAX
     Dosage: 4 PILLS ONCE A DAY

REACTIONS (1)
  - Diarrhoea [Unknown]
